FAERS Safety Report 8906333 (Version 1)
Quarter: 2012Q4

REPORT INFORMATION
  Report Type: Spontaneous
  Country: US (occurrence: None)
  Receive Date: 20121112
  Receipt Date: 20121112
  Transmission Date: 20130627
  Serious: Yes (Other)
  Sender: FDA-Public Use
  Company Number: None

PATIENT
  Age: 54 Year
  Sex: Female
  Weight: 87.09 kg

DRUGS (2)
  1. MIRTAZAPINE [Suspect]
     Indication: DEPRESSION
     Route: 048
     Dates: start: 20120623, end: 20120725
  2. CYMBALTA [Suspect]
     Indication: DEPRESSION
     Route: 048
     Dates: start: 20120623, end: 20120725

REACTIONS (13)
  - Pruritus [None]
  - Vomiting [None]
  - Agitation [None]
  - Dyspnoea [None]
  - Anxiety [None]
  - Hypoaesthesia [None]
  - Swelling [None]
  - Palpitations [None]
  - Paraesthesia [None]
  - Stress [None]
  - Impaired driving ability [None]
  - Blood cholesterol increased [None]
  - Stevens-Johnson syndrome [None]
